FAERS Safety Report 14773452 (Version 35)
Quarter: 2024Q1

REPORT INFORMATION
  Report Type: Report from Study
  Country: CA (occurrence: CA)
  Receive Date: 20180418
  Receipt Date: 20240305
  Transmission Date: 20240410
  Serious: Yes (Other)
  Sender: FDA-Public Use
  Company Number: PHHY2016CA136786

PATIENT
  Age: 72 Year
  Sex: Female

DRUGS (86)
  1. SANDOSTATIN LAR DEPOT [Suspect]
     Active Substance: OCTREOTIDE ACETATE
     Indication: Carcinoid tumour
     Dosage: 30 MG, QMO (EVERY FOUR WEEK)
     Route: 030
     Dates: start: 20160707
  2. SANDOSTATIN LAR DEPOT [Suspect]
     Active Substance: OCTREOTIDE ACETATE
     Dosage: 60 MG, Q4W
     Route: 030
     Dates: start: 20160707
  3. SANDOSTATIN LAR DEPOT [Suspect]
     Active Substance: OCTREOTIDE ACETATE
     Dosage: 100 UG, TID
     Route: 058
     Dates: start: 201710
  4. DULOXETINE [Suspect]
     Active Substance: DULOXETINE
     Indication: Pain in extremity
     Dosage: UNK
     Route: 065
  5. CANDESARTAN CILEXETIL [Suspect]
     Active Substance: CANDESARTAN CILEXETIL
     Indication: Product used for unknown indication
     Dosage: 25 MG, QD (32MG/25MG)
     Route: 048
  6. ESTRADIOL\NORETHINDRONE ACETATE [Suspect]
     Active Substance: ESTRADIOL\NORETHINDRONE ACETATE
     Indication: Product used for unknown indication
     Dosage: 1 DOSAGE FORM, BIW (140/50 0.14MG-0.05M, PATCH, 1 PATCH TWICE A WEEK)
     Route: 065
  7. ATENOLOL [Suspect]
     Active Substance: ATENOLOL
     Indication: Product used for unknown indication
     Dosage: UNK (1/2 CO DIE BID)
     Route: 048
  8. EURO DOCUSATE C [Concomitant]
     Indication: Product used for unknown indication
     Dosage: 2 DOSAGE FORM, BID (AM AND PM)
     Route: 048
  9. CYMBALTA [Concomitant]
     Active Substance: DULOXETINE HYDROCHLORIDE
     Indication: Back pain
     Dosage: UNK
     Route: 065
  10. CYMBALTA [Concomitant]
     Active Substance: DULOXETINE HYDROCHLORIDE
     Dosage: UNK
     Route: 065
  11. CYMBALTA [Concomitant]
     Active Substance: DULOXETINE HYDROCHLORIDE
     Dosage: UNK
     Route: 065
  12. CYMBALTA [Concomitant]
     Active Substance: DULOXETINE HYDROCHLORIDE
     Dosage: UNK
     Route: 065
  13. SYNTHROID [Concomitant]
     Active Substance: LEVOTHYROXINE SODIUM
     Indication: Product used for unknown indication
     Dosage: UNK UNK, QD  (IN THE MORNING)
     Route: 048
  14. SYNTHROID [Concomitant]
     Active Substance: LEVOTHYROXINE SODIUM
     Dosage: UNK UNK, QD  (IN THE MORNING)
     Route: 048
  15. SYNTHROID [Concomitant]
     Active Substance: LEVOTHYROXINE SODIUM
     Dosage: UNK UNK, QD  (IN THE MORNING)
     Route: 048
  16. RIVA ROSUVASTATIN [Concomitant]
     Indication: Product used for unknown indication
     Dosage: 5 MG, QD, (STRENGTH: 5 MG
     Route: 048
  17. RIVA ROSUVASTATIN [Concomitant]
     Dosage: 10 MG, QD (1 TAB DAILY)
     Route: 048
  18. RIVA ROSUVASTATIN [Concomitant]
     Dosage: UNK1.0 DOSAGE FORMS,1 EVERY 1 DAYS
     Route: 048
  19. CLIMARA [Concomitant]
     Active Substance: ESTRADIOL
     Indication: Product used for unknown indication
     Dosage: 1 DOSAGE FORM, QW (STRENGTH: 15MCG-45MCG/24,PATCH)
     Route: 065
  20. POLYETHYLENE GLYCOL 3350 [Concomitant]
     Active Substance: POLYETHYLENE GLYCOL 3350
     Indication: Product used for unknown indication
     Dosage: UNK, BID
     Route: 048
  21. ATENOLOL [Concomitant]
     Active Substance: ATENOLOL
     Indication: Product used for unknown indication
     Dosage: 30 MG, PRN
     Route: 048
  22. ATENOLOL [Concomitant]
     Active Substance: ATENOLOL
     Dosage: 25 MG, PRN ((1/2 CO DIE BID AM))
     Route: 048
  23. LYRICA [Concomitant]
     Active Substance: PREGABALIN
     Indication: Back pain
     Dosage: 1 DOSAGE FORM, BID (STRENGTH 25MG)
     Route: 048
     Dates: end: 2018
  24. LYRICA [Concomitant]
     Active Substance: PREGABALIN
     Dosage: 75 MG (AT BEDTIME PLUS 50 MG PER DAY)
     Route: 048
     Dates: start: 2018
  25. LYRICA [Concomitant]
     Active Substance: PREGABALIN
     Dosage: 50 MG (DURING THE DAY)
     Route: 065
     Dates: start: 2018
  26. FLUTICASONE FUROATE [Concomitant]
     Active Substance: FLUTICASONE FUROATE
     Indication: Product used for unknown indication
     Dosage: UNK, QD ((1 VAPORISATION))
     Route: 045
  27. FLUTICASONE FUROATE [Concomitant]
     Active Substance: FLUTICASONE FUROATE
     Dosage: UNK, QD ((1 VAPORISATION))
     Route: 045
  28. RIVA LANSOPRAZOLE [Concomitant]
     Indication: Product used for unknown indication
     Dosage: UNK, PRN (1 CO DIE PRN)
     Route: 048
  29. RIVA LANSOPRAZOLE [Concomitant]
     Dosage: UNK, PRN (1 CO DIE PRN)
     Route: 048
  30. NAPROXEN [Concomitant]
     Active Substance: NAPROXEN
     Indication: Product used for unknown indication
     Dosage: 1 DF, BID (ENTERIC-FILM COATED TABLET, PRN)
     Route: 048
  31. NAPROXEN [Concomitant]
     Active Substance: NAPROXEN
     Dosage: 1 DF, BID
     Route: 048
  32. NAPROXEN [Concomitant]
     Active Substance: NAPROXEN
     Dosage: UNK, BID
     Route: 065
  33. AMITRIPTYLINE [Concomitant]
     Active Substance: AMITRIPTYLINE
     Indication: Product used for unknown indication
     Dosage: UNK (STRENGTH 50 MG AND 75 MG)
     Route: 048
  34. AMITRIPTYLINE [Concomitant]
     Active Substance: AMITRIPTYLINE
     Dosage: UNK (STRENGTH 50 MG AND 75 MG)
     Route: 048
  35. AMITRIPTYLINE [Concomitant]
     Active Substance: AMITRIPTYLINE
     Dosage: UNK
     Route: 048
  36. RIVA AMLODIPINE [Concomitant]
     Indication: Product used for unknown indication
     Dosage: UNK, QD
     Route: 048
  37. EURO ASA EC [Concomitant]
     Indication: Product used for unknown indication
     Dosage: UNK, QD (1 CO DIE IN AM)
     Route: 048
  38. EURO ASA EC [Concomitant]
     Dosage: UNK, QD
     Route: 048
  39. RIVA-CYCLOPRINE [Concomitant]
     Indication: Product used for unknown indication
     Dosage: UNK, QH (1 CO DIE)
     Route: 065
  40. RIVA-CYCLOPRINE [Concomitant]
     Route: 065
  41. CANDESARTAN CILEXETIL\HYDROCHLOROTHIAZIDE [Concomitant]
     Active Substance: CANDESARTAN CILEXETIL\HYDROCHLOROTHIAZIDE
     Indication: Product used for unknown indication
     Dosage: UNK UNK, QD (1 CO DIE AM)
     Route: 048
     Dates: end: 202009
  42. VENLAFAXINE HYDROCHLORIDE [Concomitant]
     Active Substance: VENLAFAXINE HYDROCHLORIDE
     Indication: Back pain
     Dosage: UNK
     Route: 065
  43. VENLAFAXINE HYDROCHLORIDE [Concomitant]
     Active Substance: VENLAFAXINE HYDROCHLORIDE
     Dosage: UNK
     Route: 065
  44. AMOXICILLIN TRIHYDRATE [Concomitant]
     Active Substance: AMOXICILLIN
     Indication: Product used for unknown indication
     Dosage: UNK
     Route: 065
  45. AMOXICILLIN TRIHYDRATE [Concomitant]
     Active Substance: AMOXICILLIN
     Dosage: UNK
     Route: 065
  46. TYLENOL [Concomitant]
     Active Substance: ACETAMINOPHEN
     Indication: Arthritis
     Dosage: UNK
     Route: 065
  47. TYLENOL [Concomitant]
     Active Substance: ACETAMINOPHEN
     Dosage: UNK
     Route: 065
  48. TYLENOL [Concomitant]
     Active Substance: ACETAMINOPHEN
     Dosage: UNK
     Route: 065
  49. AMLODIPINE BESYLATE [Concomitant]
     Active Substance: AMLODIPINE BESYLATE
     Indication: Product used for unknown indication
     Dosage: UNK, QD
     Route: 048
  50. AMLODIPINE BESYLATE [Concomitant]
     Active Substance: AMLODIPINE BESYLATE
     Dosage: UNK
     Route: 065
  51. .ALPHA.-TOCOPHEROL, D- [Concomitant]
     Active Substance: .ALPHA.-TOCOPHEROL, D-
     Indication: Product used for unknown indication
     Dosage: 400 IU ( (DIE FOR A WEEK))
     Route: 065
     Dates: start: 201610
  52. FLEXERIL [Concomitant]
     Active Substance: CYCLOBENZAPRINE HYDROCHLORIDE
     Indication: Product used for unknown indication
     Dosage: 1 DF
     Route: 048
  53. BUDESONIDE [Concomitant]
     Active Substance: BUDESONIDE
     Indication: Product used for unknown indication
     Dosage: 1 DF
  54. BUDESONIDE [Concomitant]
     Active Substance: BUDESONIDE
     Dosage: 1 DF
     Route: 065
  55. CANDESARTAN CILEXETIL\HYDROCHLOROTHIAZIDE [Concomitant]
     Active Substance: CANDESARTAN CILEXETIL\HYDROCHLOROTHIAZIDE
     Indication: Product used for unknown indication
     Dosage: UNK, QD
     Route: 065
  56. CANDESARTAN CILEXETIL\HYDROCHLOROTHIAZIDE [Concomitant]
     Active Substance: CANDESARTAN CILEXETIL\HYDROCHLOROTHIAZIDE
     Dosage: UNK, QD,1 EVERY 1 DAYS
     Route: 065
  57. CANDESARTAN CILEXETIL\HYDROCHLOROTHIAZIDE [Concomitant]
     Active Substance: CANDESARTAN CILEXETIL\HYDROCHLOROTHIAZIDE
     Dosage: UNK, QD,1 EVERY 1 DAYS
     Route: 065
  58. NAPROXEN [Concomitant]
     Active Substance: NAPROXEN
     Indication: Product used for unknown indication
     Dosage: UNK, BID
     Route: 065
  59. NAPROXEN [Concomitant]
     Active Substance: NAPROXEN
     Dosage: 1 DF, BID (ENTERIC-FILM COATED TABLET, PRN)
     Route: 048
  60. NAPROXEN [Concomitant]
     Active Substance: NAPROXEN
     Dosage: 1 DF, BID
     Route: 048
  61. NAPROXEN [Concomitant]
     Active Substance: NAPROXEN
     Dosage: UNK, BID
     Route: 065
  62. NAPROXEN [Concomitant]
     Active Substance: NAPROXEN
     Route: 065
  63. AMITRIPTYLINE HYDROCHLORIDE [Concomitant]
     Active Substance: AMITRIPTYLINE HYDROCHLORIDE
     Indication: Product used for unknown indication
     Dosage: UNK (STRENGTH 50 MG AND 75 MG)
     Route: 048
  64. AMITRIPTYLINE HYDROCHLORIDE [Concomitant]
     Active Substance: AMITRIPTYLINE HYDROCHLORIDE
     Dosage: UNK
     Route: 048
  65. AMITRIPTYLINE HYDROCHLORIDE [Concomitant]
     Active Substance: AMITRIPTYLINE HYDROCHLORIDE
     Route: 065
  66. ASPIRIN [Concomitant]
     Active Substance: ASPIRIN
     Indication: Product used for unknown indication
     Dosage: UNK, QD (1 CO DIE IN AM)
     Route: 048
  67. ASPIRIN [Concomitant]
     Active Substance: ASPIRIN
     Dosage: UNK, QD
     Route: 048
  68. ASPIRIN [Concomitant]
     Active Substance: ASPIRIN
     Route: 065
  69. CYCLOBENZAPRINE HYDROCHLORIDE [Concomitant]
     Active Substance: CYCLOBENZAPRINE HYDROCHLORIDE
     Indication: Product used for unknown indication
     Dosage: UNK, QH (1 CO DIE)
     Route: 065
  70. CYCLOBENZAPRINE HYDROCHLORIDE [Concomitant]
     Active Substance: CYCLOBENZAPRINE HYDROCHLORIDE
     Dosage: UNK, QH (1 CO DIE)
     Route: 065
  71. CANDESARTAN CILEXETIL AND HYDROCHLOROTHIAZIDE [Concomitant]
     Active Substance: CANDESARTAN CILEXETIL\HYDROCHLOROTHIAZIDE
     Indication: Product used for unknown indication
     Dosage: UNK UNK, QD (1 CO DIE AM)
     Route: 048
     Dates: end: 202009
  72. CANDESARTAN CILEXETIL AND HYDROCHLOROTHIAZIDE [Concomitant]
     Active Substance: CANDESARTAN CILEXETIL\HYDROCHLOROTHIAZIDE
     Dosage: UNK UNK, QD (1 CO DIE AM)
     Route: 048
     Dates: end: 202009
  73. AMLODIPINE [Concomitant]
     Active Substance: AMLODIPINE BESYLATE
     Indication: Product used for unknown indication
     Dosage: UNK
     Route: 065
  74. AMLODIPINE [Concomitant]
     Active Substance: AMLODIPINE BESYLATE
     Dosage: UNK
     Route: 065
  75. AMLODIPINE [Concomitant]
     Active Substance: AMLODIPINE BESYLATE
     Route: 065
  76. EFFEXOR [Concomitant]
     Active Substance: VENLAFAXINE HYDROCHLORIDE
     Indication: Back pain
     Dosage: UNK
     Route: 065
  77. EFFEXOR [Concomitant]
     Active Substance: VENLAFAXINE HYDROCHLORIDE
     Indication: Product used for unknown indication
     Route: 065
  78. VITAMIN E [Concomitant]
     Active Substance: .ALPHA.-TOCOPHEROL
     Indication: Product used for unknown indication
     Dosage: 400 IU ( (DIE FOR A WEEK))
     Route: 065
     Dates: start: 201610
  79. VITAMIN E [Concomitant]
     Active Substance: .ALPHA.-TOCOPHEROL
     Route: 065
  80. ROSUVASTATIN CALCIUM [Concomitant]
     Active Substance: ROSUVASTATIN CALCIUM
     Indication: Product used for unknown indication
     Dosage: 5 MG, QD, (STRENGTH: 5 MG
     Route: 048
  81. ROSUVASTATIN CALCIUM [Concomitant]
     Active Substance: ROSUVASTATIN CALCIUM
     Dosage: 10 MG, QD (1 TAB DAILY)
     Route: 048
  82. ROSUVASTATIN CALCIUM [Concomitant]
     Active Substance: ROSUVASTATIN CALCIUM
     Dosage: UNK1.0 DOSAGE FORMS,1 EVERY 1 DAYS
     Route: 048
  83. ROSUVASTATIN CALCIUM [Concomitant]
     Active Substance: ROSUVASTATIN CALCIUM
     Route: 065
  84. POLYETHYLENE GLYCOL 3350 [Concomitant]
     Active Substance: POLYETHYLENE GLYCOL 3350
     Indication: Product used for unknown indication
     Dosage: UNK, BID
     Route: 048
  85. CANDESARTAN CILEXETIL\HYDROCHLOROTHIAZIDE [Concomitant]
     Active Substance: CANDESARTAN CILEXETIL\HYDROCHLOROTHIAZIDE
     Indication: Product used for unknown indication
     Route: 065
  86. LANREOTIDE ACETATE [Concomitant]
     Active Substance: LANREOTIDE ACETATE
     Indication: Product used for unknown indication
     Route: 065

REACTIONS (40)
  - Renal impairment [Unknown]
  - Pneumonia [Unknown]
  - Rhinorrhoea [Unknown]
  - Hot flush [Unknown]
  - Musculoskeletal pain [Unknown]
  - Contusion [Unknown]
  - Acne [Not Recovered/Not Resolved]
  - Bursitis [Unknown]
  - Body temperature decreased [Unknown]
  - Somnolence [Unknown]
  - Sinusitis [Recovered/Resolved]
  - Sinusitis [Unknown]
  - Erythema [Unknown]
  - Back pain [Unknown]
  - Productive cough [Unknown]
  - Hypokinesia [Unknown]
  - Blood potassium decreased [Unknown]
  - Headache [Unknown]
  - Gingival abscess [Unknown]
  - Blood pressure systolic increased [Unknown]
  - Fatigue [Unknown]
  - Pruritus [Not Recovered/Not Resolved]
  - Nausea [Recovered/Resolved]
  - Dizziness [Unknown]
  - Constipation [Unknown]
  - Abdominal distension [Unknown]
  - Dyspnoea [Unknown]
  - Diarrhoea [Unknown]
  - Abdominal pain [Recovered/Resolved]
  - Nausea [Recovered/Resolved]
  - Hypotension [Unknown]
  - Abdominal pain lower [Recovered/Resolved]
  - Heart rate decreased [Unknown]
  - Needle issue [Unknown]
  - Product administration error [Unknown]
  - Incorrect dose administered [Unknown]
  - Application site reaction [Unknown]
  - Sciatic nerve injury [Unknown]
  - Arthralgia [Unknown]
  - Pain in extremity [Unknown]

NARRATIVE: CASE EVENT DATE: 20160926
